FAERS Safety Report 9046439 (Version 1)
Quarter: 2013Q1

REPORT INFORMATION
  Report Type: Report from Study
  Country: US (occurrence: US)
  Receive Date: 20130130
  Receipt Date: 20130130
  Transmission Date: 20140127
  Serious: No
  Sender: FDA-Public Use
  Company Number: US-ABBOTT-12P-163-0973319-00

PATIENT
  Sex: Female
  Weight: 111.23 kg

DRUGS (4)
  1. HUMIRA 40 MG/0.8 ML PEN [Suspect]
     Indication: RHEUMATOID ARTHRITIS
     Dates: start: 2011
  2. METHOTREXATE [Concomitant]
     Indication: RHEUMATOID ARTHRITIS
  3. GABAPENTIN [Concomitant]
     Indication: RHEUMATOID ARTHRITIS
  4. TRAMADOL [Concomitant]
     Indication: RHEUMATOID ARTHRITIS

REACTIONS (9)
  - Arthralgia [Unknown]
  - Arthralgia [Not Recovered/Not Resolved]
  - Injection site pain [Recovered/Resolved]
  - Injection site pain [Recovered/Resolved]
  - Injection site irritation [Recovered/Resolved]
  - Arthralgia [Not Recovered/Not Resolved]
  - Incorrect dose administered [Recovered/Resolved]
  - Device malfunction [Recovered/Resolved]
  - Device malfunction [Recovered/Resolved]
